FAERS Safety Report 4927513-8 (Version None)
Quarter: 2006Q1

REPORT INFORMATION
  Report Type: 
  Country: None (occurrence: None)
  Receive Date: 20060228
  Receipt Date: 20050810
  Transmission Date: 20060701
  Serious: Yes (Hospitalization, Other)
  Sender: FDA-Public Use
  Company Number: US-MERCK-0508USA01942

PATIENT
  Age: 76 Year
  Sex: Male

DRUGS (10)
  1. LOPRESSOR [Concomitant]
     Route: 065
  2. IMDUR [Concomitant]
     Route: 065
  3. RESTORIL [Concomitant]
     Route: 065
  4. LOVENOX [Concomitant]
     Route: 065
  5. VIOXX [Suspect]
     Indication: ARTHRITIS
     Route: 048
  6. VIOXX [Suspect]
     Route: 048
  7. ZOCOR [Concomitant]
     Route: 048
  8. ASPIRIN [Concomitant]
     Route: 065
  9. NITROGLYCERIN [Concomitant]
     Route: 065
  10. CAPOTEN [Concomitant]
     Route: 065

REACTIONS (19)
  - AKINESIA [None]
  - AORTIC VALVE SCLEROSIS [None]
  - CARDIOMYOPATHY [None]
  - CORONARY ARTERY DISEASE [None]
  - CORONARY ARTERY OCCLUSION [None]
  - CORONARY ARTERY STENOSIS [None]
  - CORONARY OSTIAL STENOSIS [None]
  - DILATATION ATRIAL [None]
  - FATIGUE [None]
  - HYPOTENSION [None]
  - INJURY [None]
  - INTERMITTENT CLAUDICATION [None]
  - MITRAL VALVE INCOMPETENCE [None]
  - MYOCARDIAL INFARCTION [None]
  - MYOCARDIAL ISCHAEMIA [None]
  - OEDEMA PERIPHERAL [None]
  - RENAL FAILURE [None]
  - VASCULAR CALCIFICATION [None]
  - VENTRICULAR HYPERTROPHY [None]
